FAERS Safety Report 24169945 (Version 1)
Quarter: 2024Q3

REPORT INFORMATION
  Report Type: Spontaneous
  Country: US (occurrence: US)
  Receive Date: 20240803
  Receipt Date: 20240803
  Transmission Date: 20241017
  Serious: No
  Sender: ROCHE
  Company Number: US-ROCHE-10000047405

PATIENT
  Sex: Female

DRUGS (6)
  1. ACTEMRA [Suspect]
     Active Substance: TOCILIZUMAB
     Indication: Product used for unknown indication
     Route: 058
  2. XELJANZ [Concomitant]
     Active Substance: TOFACITINIB CITRATE
     Indication: Rheumatoid arthritis
     Route: 048
     Dates: start: 20240210
  3. CIMZIA [Concomitant]
     Active Substance: CERTOLIZUMAB PEGOL
  4. KEVZARA [Concomitant]
     Active Substance: SARILUMAB
  5. OLUMIANT [Concomitant]
     Active Substance: BARICITINIB
  6. RINVOQ [Concomitant]
     Active Substance: UPADACITINIB

REACTIONS (2)
  - Headache [Unknown]
  - Arthralgia [Unknown]
